FAERS Safety Report 15531955 (Version 1)
Quarter: 2018Q4

REPORT INFORMATION
  Report Type: Spontaneous
  Country: US (occurrence: US)
  Receive Date: 20181019
  Receipt Date: 20181019
  Transmission Date: 20190205
  Serious: Yes (Other)
  Sender: FDA-Public Use
  Company Number: US-LUPIN PHARMACEUTICALS INC.-2018-07196

PATIENT
  Sex: Male

DRUGS (1)
  1. MELOXICAM TABLETS [Suspect]
     Active Substance: MELOXICAM
     Indication: PRODUCT USED FOR UNKNOWN INDICATION
     Dosage: UNK
     Route: 065

REACTIONS (3)
  - Prescription drug used without a prescription [Unknown]
  - Gastrointestinal haemorrhage [Unknown]
  - Feeling abnormal [Unknown]
